FAERS Safety Report 25027434 (Version 1)
Quarter: 2025Q1

REPORT INFORMATION
  Report Type: Spontaneous
  Country: US (occurrence: US)
  Receive Date: 20250301
  Receipt Date: 20250301
  Transmission Date: 20250409
  Serious: No
  Sender: SANOFI AVENTIS
  Company Number: US-SANOFI-02423251

PATIENT
  Sex: Female
  Weight: 50 kg

DRUGS (2)
  1. DUPIXENT [Suspect]
     Active Substance: DUPILUMAB
     Indication: Chronic rhinosinusitis with nasal polyps
     Dosage: 300 MG, QOW
  2. MOMETASONE FUROATE [Concomitant]
     Active Substance: MOMETASONE FUROATE

REACTIONS (2)
  - Acne [Not Recovered/Not Resolved]
  - Rash [Not Recovered/Not Resolved]
